FAERS Safety Report 13940975 (Version 1)
Quarter: 2017Q3

REPORT INFORMATION
  Report Type: Spontaneous
  Country: US (occurrence: US)
  Receive Date: 20170906
  Receipt Date: 20170906
  Transmission Date: 20171127
  Serious: No
  Sender: FDA-Public Use
  Company Number: US-009507513-1708USA013118

PATIENT

DRUGS (1)
  1. DULERA [Suspect]
     Active Substance: FORMOTEROL FUMARATE DIHYDRATE\MOMETASONE FUROATE
     Dosage: ^ONE PUFF IN MORNING AND ONE PUFF IN THE EVENING^

REACTIONS (3)
  - No adverse event [Unknown]
  - Product quality issue [Unknown]
  - Product taste abnormal [Unknown]
